FAERS Safety Report 4322326-2 (Version None)
Quarter: 2004Q1

REPORT INFORMATION
  Report Type: 
  Country: None (occurrence: None)
  Receive Date: 20040319
  Receipt Date: 20040304
  Transmission Date: 20041129
  Serious: Yes (Life-Threatening, Hospitalization)
  Sender: FDA-Public Use
  Company Number: 2004-DE-00985DE (1)

PATIENT

DRUGS (1)
  1. AGGRENOX [Suspect]
     Dosage: SEE TEXT
     Route: 048

REACTIONS (1)
  - CEREBROVASCULAR ACCIDENT [None]
